FAERS Safety Report 9282704 (Version 1)
Quarter: 2013Q2

REPORT INFORMATION
  Report Type: Spontaneous
  Country: US (occurrence: None)
  Receive Date: 20130509
  Receipt Date: 20130509
  Transmission Date: 20140414
  Serious: No
  Sender: FDA-Public Use
  Company Number: None

PATIENT
  Age: 96 Year
  Sex: Female
  Weight: 74.84 kg

DRUGS (1)
  1. SULFAMETHOXAZOLE-T MP [Suspect]
     Indication: URINARY TRACT INFECTION
     Dosage: TWICE DAYLY/5 DYS
     Route: 048
     Dates: start: 20130505, end: 20130507

REACTIONS (2)
  - Muscular weakness [None]
  - Dysstasia [None]
